FAERS Safety Report 6176820-2 (Version None)
Quarter: 2009Q2

REPORT INFORMATION
  Report Type: 
  Country: None (occurrence: None)
  Receive Date: 20090501
  Receipt Date: 20090423
  Transmission Date: 20091009
  Serious: Yes (Other)
  Sender: FDA-Public Use
  Company Number: PHHY2009US15735

PATIENT
  Sex: Male

DRUGS (3)
  1. EXJADE [Suspect]
     Indication: MYELODYSPLASTIC SYNDROME
     Dosage: 1500 MG, QD
     Route: 048
     Dates: start: 20090108, end: 20090309
  2. ACYCLOVIR [Concomitant]
  3. CHEMOTHERAPEUTICS NOS [Concomitant]

REACTIONS (3)
  - ABDOMINAL PAIN UPPER [None]
  - COLITIS [None]
  - DIARRHOEA [None]
